FAERS Safety Report 24266379 (Version 1)
Quarter: 2024Q3

REPORT INFORMATION
  Report Type: Spontaneous
  Country: US (occurrence: US)
  Receive Date: 20240830
  Receipt Date: 20240830
  Transmission Date: 20241016
  Serious: No
  Sender: GLAUKOS
  Company Number: US-GLK-002374

PATIENT

DRUGS (2)
  1. IDOSE TR [Suspect]
     Active Substance: TRAVOPROST
     Indication: Product used for unknown indication
     Dosage: RIGHT EYE
  2. IDOSE TR [Suspect]
     Active Substance: TRAVOPROST

REACTIONS (2)
  - Device use error [Unknown]
  - Intraocular pressure increased [Unknown]
